FAERS Safety Report 16747813 (Version 1)
Quarter: 2019Q3

REPORT INFORMATION
  Report Type: Report from Study
  Country: BR (occurrence: BR)
  Receive Date: 20190827
  Receipt Date: 20190827
  Transmission Date: 20191005
  Serious: Yes (Hospitalization, Other)
  Sender: FDA-Public Use
  Company Number: PHHY2019BR196068

PATIENT
  Age: 61 Year
  Sex: Female

DRUGS (2)
  1. ENTRESTO [Suspect]
     Active Substance: SACUBITRIL\VALSARTAN
     Indication: PRODUCT USED FOR UNKNOWN INDICATION
     Dosage: 0.5 DF(24/26MG), BID (1 IN THE MORNING AND 1 IN THE NIGHT)
     Route: 065
     Dates: start: 201812
  2. ENTRESTO [Suspect]
     Active Substance: SACUBITRIL\VALSARTAN
     Dosage: 0.5 DF, UNK
     Route: 065

REACTIONS (8)
  - Cardiac disorder [Recovered/Resolved]
  - Asthenia [Unknown]
  - Wrong technique in product usage process [Unknown]
  - Underdose [Unknown]
  - Ejection fraction decreased [Recovered/Resolved]
  - Alopecia [Not Recovered/Not Resolved]
  - Malaise [Unknown]
  - Speech disorder [Not Recovered/Not Resolved]

NARRATIVE: CASE EVENT DATE: 201812
